FAERS Safety Report 6627680-4 (Version None)
Quarter: 2010Q1

REPORT INFORMATION
  Report Type: 
  Country: None (occurrence: None)
  Receive Date: 20100311
  Receipt Date: 20100226
  Transmission Date: 20100710
  Serious: Yes (Other)
  Sender: FDA-Public Use
  Company Number: PHHY2010GB12235

PATIENT
  Sex: Male

DRUGS (2)
  1. CLOZARIL [Suspect]
     Indication: SCHIZOPHRENIA
     Dosage: 400 MG
     Dates: start: 20010508
  2. CLOZARIL [Suspect]
     Dosage: 800 MG
     Dates: start: 20100226

REACTIONS (3)
  - AGITATION [None]
  - OVERDOSE [None]
  - STRESS [None]
